FAERS Safety Report 13855083 (Version 2)
Quarter: 2017Q4

REPORT INFORMATION
  Report Type: Report from Study
  Country: FR (occurrence: FR)
  Receive Date: 20170810
  Receipt Date: 20171204
  Transmission Date: 20180320
  Serious: Yes (Death, Hospitalization)
  Sender: FDA-Public Use
  Company Number: PHHO2017FR010099

PATIENT
  Age: 70 Year
  Sex: Male
  Weight: 77.5 kg

DRUGS (13)
  1. AZACITIDINE. [Suspect]
     Active Substance: AZACITIDINE
     Indication: MYELODYSPLASTIC SYNDROME
     Dosage: 75 MG/M2, UNK
     Route: 058
     Dates: start: 20170529, end: 20170602
  2. EXJADE [Concomitant]
     Active Substance: DEFERASIROX
     Indication: CHELATION THERAPY
     Dosage: 1500 MG, QD
     Route: 048
  3. NOVORAPID [Concomitant]
     Active Substance: INSULIN ASPART
     Indication: DISSOCIATIVE IDENTITY DISORDER
     Dosage: 30 IU, UNK
     Route: 058
  4. LACTULOSE. [Concomitant]
     Active Substance: LACTULOSE
     Indication: CONSTIPATION
     Dosage: 1 DF, 1 POUCH
     Route: 048
  5. AZACITIDINE. [Suspect]
     Active Substance: AZACITIDINE
     Dosage: 75 MG/M2, UNK
     Route: 058
     Dates: start: 20170626
  6. MAGNE B6 [Concomitant]
     Active Substance: MAGNESIUM\PYRIDOXINE
     Indication: PRODUCT USED FOR UNKNOWN INDICATION
     Dosage: 1 DF, QD (1 TABLET)
     Route: 048
  7. AMOXICILLINE [Concomitant]
     Active Substance: AMOXICILLIN
     Indication: PROSTATITIS
     Dosage: 6 MG, UNK
     Route: 048
     Dates: start: 20170712, end: 20170802
  8. RAMIPRIL. [Concomitant]
     Active Substance: RAMIPRIL
     Indication: HYPERTENSION
     Dosage: 10 MG, QD
     Route: 048
  9. HYDROXYZINE [Concomitant]
     Active Substance: HYDROXYZINE HYDROCHLORIDE
     Indication: ANXIETY
     Dosage: 25 MG, UNK
     Route: 048
  10. ZELITREX [Concomitant]
     Active Substance: VALACYCLOVIR HYDROCHLORIDE
     Indication: PROPHYLAXIS
     Dosage: 1000 MG, QD
     Route: 048
  11. LDE 225 [Suspect]
     Active Substance: ERISMODEGIB
     Dosage: 400 MG, UNK
     Route: 048
     Dates: start: 20170724
  12. LANTUS [Concomitant]
     Active Substance: INSULIN GLARGINE
     Indication: DISSOCIATIVE IDENTITY DISORDER
     Dosage: 56 IU/D
     Route: 058
  13. LDE 225 [Suspect]
     Active Substance: ERISMODEGIB
     Indication: MYELODYSPLASTIC SYNDROME
     Dosage: 400 MG, UNK
     Route: 048
     Dates: start: 20170529, end: 20170701

REACTIONS (2)
  - Sepsis [Fatal]
  - Febrile bone marrow aplasia [Recovering/Resolving]

NARRATIVE: CASE EVENT DATE: 20170702
